FAERS Safety Report 23545953 (Version 1)
Quarter: 2024Q1

REPORT INFORMATION
  Report Type: Spontaneous
  Country: US (occurrence: None)
  Receive Date: 20240219
  Receipt Date: 20240219
  Transmission Date: 20240410
  Serious: Yes (Death)
  Sender: FDA-Public Use
  Company Number: None

PATIENT
  Age: 58 Year
  Sex: Male

DRUGS (10)
  1. VOSEVI [Suspect]
     Active Substance: SOFOSBUVIR\VELPATASVIR\VOXILAPREVIR
     Indication: Hepatitis C
     Dosage: TK 1 T PO QD FOR 3 MONTHS
     Route: 048
     Dates: start: 202311
  2. BACTRIM DS [Concomitant]
     Active Substance: SULFAMETHOXAZOLE\TRIMETHOPRIM
  3. BANOPPHEN (DIPHENHYDRAMINE) [Concomitant]
  4. CEFUROXIME [Concomitant]
     Active Substance: CEFUROXIME
  5. KETOCONAZOLE [Concomitant]
     Active Substance: KETOCONAZOLE
  6. LACTULOSE [Concomitant]
     Active Substance: LACTULOSE
  7. MOTRIN [Concomitant]
     Active Substance: IBUPROFEN
  8. NORCO [Concomitant]
     Active Substance: ACETAMINOPHEN\HYDROCODONE BITARTRATE
  9. TRAMADOL [Concomitant]
     Active Substance: TRAMADOL\TRAMADOL HYDROCHLORIDE
  10. VANCOMYCIN [Concomitant]

REACTIONS (1)
  - Death [None]

NARRATIVE: CASE EVENT DATE: 20240216
